FAERS Safety Report 10268533 (Version 2)
Quarter: 2014Q3

REPORT INFORMATION
  Report Type: Spontaneous
  Country: JP (occurrence: JP)
  Receive Date: 20140630
  Receipt Date: 20140708
  Transmission Date: 20150326
  Serious: Yes (Other)
  Sender: FDA-Public Use
  Company Number: PHHY2014JP079516

PATIENT
  Weight: 2 kg

DRUGS (3)
  1. HEPARIN CALCIUM [Suspect]
     Active Substance: HEPARIN CALCIUM
     Route: 064
  2. ASPIRIN. [Suspect]
     Active Substance: ASPIRIN
     Route: 064
  3. NEORAL [Suspect]
     Active Substance: CYCLOSPORINE
     Route: 064

REACTIONS (3)
  - Premature baby [Unknown]
  - Low birth weight baby [Recovered/Resolved]
  - Foetal exposure during pregnancy [Unknown]
